FAERS Safety Report 9336396 (Version 1)
Quarter: 2013Q2

REPORT INFORMATION
  Report Type: Spontaneous
  Country: US (occurrence: US)
  Receive Date: 20130607
  Receipt Date: 20130607
  Transmission Date: 20140414
  Serious: Yes (Death, Other)
  Sender: FDA-Public Use
  Company Number: US-TEVA-410130USA

PATIENT
  Age: 37 Year
  Sex: Male

DRUGS (8)
  1. METFORMIN [Suspect]
     Route: 065
  2. LISINOPRIL [Concomitant]
     Route: 065
  3. METAMUCIL [Concomitant]
     Route: 065
  4. COLACE [Concomitant]
     Route: 065
  5. VALPROIC ACID [Concomitant]
     Route: 065
  6. PALIPERIDONE [Concomitant]
     Route: 065
  7. SIMVASTATIN [Concomitant]
     Route: 065
  8. ASPIRIN [Concomitant]
     Route: 065

REACTIONS (4)
  - Lactic acidosis [Not Recovered/Not Resolved]
  - Death [Fatal]
  - Constipation [Unknown]
  - Unresponsive to stimuli [Unknown]
